FAERS Safety Report 4881711-0 (Version None)
Quarter: 2006Q1

REPORT INFORMATION
  Report Type: 
  Country: None (occurrence: None)
  Receive Date: 20060116
  Receipt Date: 20041111
  Transmission Date: 20060701
  Serious: Yes (Hospitalization, Disabling)
  Sender: FDA-Public Use
  Company Number: US-ROCHE-386256

PATIENT
  Age: 23 Year
  Sex: Male
  Weight: 72.6 kg

DRUGS (2)
  1. LARIAM [Suspect]
     Indication: MALARIA PROPHYLAXIS
     Route: 048
     Dates: start: 19961215, end: 19970215
  2. MARIJUANA [Suspect]
     Indication: UNEVALUABLE EVENT
     Route: 048
     Dates: start: 19970115, end: 19970115

REACTIONS (15)
  - ABNORMAL DREAMS [None]
  - ANXIETY [None]
  - DEPRESSION [None]
  - DRUG TOXICITY [None]
  - EPISTAXIS [None]
  - FEAR [None]
  - FEELING ABNORMAL [None]
  - LETHARGY [None]
  - MALAISE [None]
  - NERVOUSNESS [None]
  - PARANOIA [None]
  - PHOTOPHOBIA [None]
  - PHOTOSENSITIVITY REACTION [None]
  - SKIN ODOUR ABNORMAL [None]
  - SUICIDAL IDEATION [None]
